FAERS Safety Report 16118013 (Version 1)
Quarter: 2019Q1

REPORT INFORMATION
  Report Type: Spontaneous
  Country: US (occurrence: US)
  Receive Date: 20190326
  Receipt Date: 20190326
  Transmission Date: 20190418
  Serious: No
  Sender: FDA-Public Use
  Company Number: US-BAUSCH-BL-2018-010077

PATIENT
  Sex: Female

DRUGS (5)
  1. TRIAMCINOLONE [Suspect]
     Active Substance: TRIAMCINOLONE
     Indication: VITILIGO
     Route: 065
  2. ELIDEL [Suspect]
     Active Substance: PIMECROLIMUS
     Indication: VITILIGO
     Route: 065
  3. DESONIDE. [Suspect]
     Active Substance: DESONIDE
     Indication: VITILIGO
     Route: 065
  4. FLUOCINONIDE. [Suspect]
     Active Substance: FLUOCINONIDE
     Indication: VITILIGO
     Route: 065
  5. PROTOPIC [Suspect]
     Active Substance: TACROLIMUS
     Indication: VITILIGO
     Route: 065

REACTIONS (1)
  - Drug ineffective [Unknown]
